FAERS Safety Report 20237202 (Version 4)
Quarter: 2025Q2

REPORT INFORMATION
  Report Type: Spontaneous
  Country: CA (occurrence: CA)
  Receive Date: 20211228
  Receipt Date: 20250401
  Transmission Date: 20250716
  Serious: Yes (Other)
  Sender: Haleon PLC
  Company Number: CA-002147023-NVSC2021CA274775

PATIENT
  Age: 52 Year
  Sex: Female

DRUGS (52)
  1. VOLTAREN [Suspect]
     Active Substance: DICLOFENAC SODIUM
     Indication: Product used for unknown indication
     Route: 048
  2. METHOTREXATE [Suspect]
     Active Substance: METHOTREXATE
     Indication: Product used for unknown indication
     Route: 050
  3. METHOTREXATE [Suspect]
     Active Substance: METHOTREXATE
     Route: 050
  4. METHOTREXATE [Suspect]
     Active Substance: METHOTREXATE
     Route: 050
  5. METHOTREXATE [Suspect]
     Active Substance: METHOTREXATE
     Route: 050
  6. DESOXIMETASONE [Concomitant]
     Active Substance: DESOXIMETASONE
     Indication: Product used for unknown indication
     Route: 050
  7. DESOXIMETASONE [Concomitant]
     Active Substance: DESOXIMETASONE
  8. DESOXIMETASONE [Concomitant]
     Active Substance: DESOXIMETASONE
     Route: 050
  9. PREDNISONE [Concomitant]
     Active Substance: PREDNISONE
     Indication: Product used for unknown indication
     Route: 050
  10. PREDNISONE [Concomitant]
     Active Substance: PREDNISONE
  11. PREDNISONE [Concomitant]
     Active Substance: PREDNISONE
     Route: 050
  12. PREDNISONE [Concomitant]
     Active Substance: PREDNISONE
  13. COLCHICINE [Suspect]
     Active Substance: COLCHICINE
     Indication: Product used for unknown indication
     Route: 050
  14. COLCHICINE [Suspect]
     Active Substance: COLCHICINE
     Route: 048
  15. ARAVA [Concomitant]
     Active Substance: LEFLUNOMIDE
     Indication: Product used for unknown indication
     Route: 050
  16. ARAVA [Concomitant]
     Active Substance: LEFLUNOMIDE
  17. VIOXX [Concomitant]
     Active Substance: ROFECOXIB
     Indication: Product used for unknown indication
     Route: 065
  18. VIOXX [Concomitant]
     Active Substance: ROFECOXIB
     Route: 065
  19. VIOXX [Concomitant]
     Active Substance: ROFECOXIB
     Route: 065
  20. NAPROXEN [Concomitant]
     Active Substance: NAPROXEN
     Indication: Product used for unknown indication
     Route: 065
  21. NAPROXEN [Concomitant]
     Active Substance: NAPROXEN
  22. NAPROXEN [Concomitant]
     Active Substance: NAPROXEN
     Route: 065
  23. NAPROXEN [Concomitant]
     Active Substance: NAPROXEN
  24. NAPROXEN [Concomitant]
     Active Substance: NAPROXEN
     Route: 065
  25. NAPROXEN [Concomitant]
     Active Substance: NAPROXEN
     Route: 065
  26. GOLD [Concomitant]
     Active Substance: GOLD
     Indication: Product used for unknown indication
     Route: 050
  27. GOLD [Concomitant]
     Active Substance: GOLD
  28. METHOTREXATE [Suspect]
     Active Substance: METHOTREXATE
     Indication: Product used for unknown indication
     Route: 050
  29. METHOTREXATE [Suspect]
     Active Substance: METHOTREXATE
     Route: 058
  30. METHOTREXATE [Suspect]
     Active Substance: METHOTREXATE
     Route: 050
  31. METHOTREXATE [Suspect]
     Active Substance: METHOTREXATE
     Route: 058
  32. METHOTREXATE [Suspect]
     Active Substance: METHOTREXATE
     Route: 058
  33. ERELZI [Suspect]
     Active Substance: ETANERCEPT-SZZS
     Indication: Ankylosing spondylitis
     Dosage: 50 MG, QW (1 EVERY 1 WEEKS)
     Route: 058
  34. LEFLUNOMIDE [Suspect]
     Active Substance: LEFLUNOMIDE
     Indication: Product used for unknown indication
     Route: 065
  35. LEFLUNOMIDE [Suspect]
     Active Substance: LEFLUNOMIDE
     Route: 065
  36. LEFLUNOMIDE [Suspect]
     Active Substance: LEFLUNOMIDE
     Route: 065
  37. INDOMETHACIN [Concomitant]
     Active Substance: INDOMETHACIN
     Indication: Product used for unknown indication
     Route: 065
  38. INDOMETHACIN [Concomitant]
     Active Substance: INDOMETHACIN
  39. INDOMETHACIN [Concomitant]
     Active Substance: INDOMETHACIN
     Route: 065
  40. INDOMETHACIN [Concomitant]
     Active Substance: INDOMETHACIN
  41. INDOMETHACIN [Concomitant]
     Active Substance: INDOMETHACIN
     Route: 065
  42. INDOMETHACIN [Concomitant]
     Active Substance: INDOMETHACIN
     Route: 065
  43. INDOMETHACIN [Concomitant]
     Active Substance: INDOMETHACIN
     Route: 065
  44. METHOTREXATE SODIUM [Suspect]
     Active Substance: METHOTREXATE SODIUM
     Indication: Product used for unknown indication
     Route: 050
  45. METHOTREXATE SODIUM [Suspect]
     Active Substance: METHOTREXATE SODIUM
     Route: 048
  46. METHOTREXATE SODIUM [Suspect]
     Active Substance: METHOTREXATE SODIUM
     Route: 050
  47. METHOTREXATE SODIUM [Suspect]
     Active Substance: METHOTREXATE SODIUM
     Route: 048
  48. METHOTREXATE SODIUM [Suspect]
     Active Substance: METHOTREXATE SODIUM
     Route: 050
  49. METHOTREXATE SODIUM [Suspect]
     Active Substance: METHOTREXATE SODIUM
     Indication: Product used for unknown indication
     Route: 050
  50. METHOTREXATE SODIUM [Suspect]
     Active Substance: METHOTREXATE SODIUM
     Route: 058
  51. METHOTREXATE SODIUM [Suspect]
     Active Substance: METHOTREXATE SODIUM
     Route: 050
  52. ERELZI [Suspect]
     Active Substance: ETANERCEPT-SZZS
     Indication: Ankylosing spondylitis
     Route: 065

REACTIONS (7)
  - Crohn^s disease [Unknown]
  - Product use issue [Unknown]
  - C-reactive protein abnormal [Unknown]
  - Drug ineffective [Unknown]
  - Episcleritis [Unknown]
  - Uveitis [Unknown]
  - Drug intolerance [Unknown]
